FAERS Safety Report 4645057-8 (Version None)
Quarter: 2005Q2

REPORT INFORMATION
  Report Type: 
  Country: None (occurrence: None)
  Receive Date: 20050422
  Receipt Date: 20050407
  Transmission Date: 20051028
  Serious: Yes (Hospitalization, Disabling)
  Sender: FDA-Public Use
  Company Number: 2005AC00218

PATIENT
  Age: 34 Year
  Sex: Female

DRUGS (2)
  1. XYLOCAINE [Suspect]
     Indication: LOCAL ANAESTHESIA
     Dosage: 20 ML ONCE ED
     Route: 008
     Dates: start: 20040818, end: 20040818
  2. NAROPIN [Suspect]
     Indication: ANAESTHESIA
     Dosage: 160 ML ED
     Route: 008
     Dates: start: 20040818, end: 20040819

REACTIONS (12)
  - ARACHNOIDITIS [None]
  - CAUDA EQUINA SYNDROME [None]
  - DRUG TOXICITY [None]
  - DYSURIA [None]
  - FALL [None]
  - HYPERAESTHESIA [None]
  - MICTURITION DISORDER [None]
  - MONOPLEGIA [None]
  - NERVE ROOT LESION [None]
  - NEUROTOXICITY [None]
  - PARAPLEGIA [None]
  - PARESIS [None]
